FAERS Safety Report 9378421 (Version 1)
Quarter: 2013Q3

REPORT INFORMATION
  Report Type: Spontaneous
  Country: DE (occurrence: DE)
  Receive Date: 20130701
  Receipt Date: 20130701
  Transmission Date: 20140515
  Serious: Yes (Life-Threatening, Disabling)
  Sender: FDA-Public Use
  Company Number: DE-ACTAVIS-2013-11889

PATIENT
  Age: 73 Year
  Sex: Female

DRUGS (3)
  1. EPIRUBICIN HYDROCHLORIDE (ATLLC) [Suspect]
     Indication: BREAST CANCER
     Dosage: UNK
     Route: 065
     Dates: start: 20050419, end: 20051007
  2. CYCLOPHOSPHAMIDE (UNKNOWN) [Suspect]
     Indication: BREAST CANCER
     Dosage: UNK
     Route: 065
     Dates: start: 20050419, end: 20051007
  3. FLUOROURACIL (UNKNOWN) [Suspect]
     Indication: BREAST CANCER
     Dosage: UNK
     Dates: start: 20050419, end: 20050419

REACTIONS (1)
  - Chronic myelomonocytic leukaemia [Recovered/Resolved with Sequelae]
